FAERS Safety Report 9214501 (Version 1)
Quarter: 2013Q2

REPORT INFORMATION
  Report Type: Spontaneous
  Country: FR (occurrence: FR)
  Receive Date: 20130405
  Receipt Date: 20130405
  Transmission Date: 20140414
  Serious: Yes (Hospitalization, Other)
  Sender: FDA-Public Use
  Company Number: FR-ROCHE-1210698

PATIENT
  Age: 67 Year
  Sex: Female

DRUGS (7)
  1. ROCEPHINE [Suspect]
     Indication: ABSCESS INTESTINAL
     Route: 042
     Dates: start: 20130214, end: 20130215
  2. FLAGYL [Concomitant]
     Route: 048
     Dates: start: 20130214
  3. GENTAMICINE [Concomitant]
     Route: 042
     Dates: start: 20130214
  4. LEVOTHYROX [Concomitant]
     Route: 048
  5. CONTRAMAL [Concomitant]
     Route: 048
     Dates: start: 20130214
  6. SPASFON [Concomitant]
     Route: 042
     Dates: start: 20130214
  7. PERFALGAN [Concomitant]
     Route: 048
     Dates: start: 20130214

REACTIONS (3)
  - Anaphylactic shock [Recovered/Resolved]
  - Rash [Recovered/Resolved]
  - Hypotension [Recovered/Resolved]
